FAERS Safety Report 7318621-5 (Version None)
Quarter: 2011Q1

REPORT INFORMATION
  Report Type: 
  Country: None (occurrence: None)
  Receive Date: 20110228
  Receipt Date: 20110223
  Transmission Date: 20110831
  Serious: Yes (Death, Other)
  Sender: FDA-Public Use
  Company Number: US-ASTELLAS-2011US000452

PATIENT

DRUGS (34)
  1. CELL CEPT [Concomitant]
     Indication: PRODUCT USED FOR UNKNOWN INDICATION
     Dosage: 1000 MG, BID
     Route: 048
  2. CELEXA [Concomitant]
     Dosage: 20 MG, UID/QD
     Route: 048
  3. PROMETHAZINE [Concomitant]
     Indication: NAUSEA
     Dosage: 12.5 MG, PRN EVERY 6 HOURS
     Route: 048
  4. INFLUENZA [Concomitant]
     Dosage: UNK
     Route: 065
     Dates: start: 20100111
  5. TETANUS DIPHTHERIA [Concomitant]
     Indication: PRODUCT USED FOR UNKNOWN INDICATION
     Dosage: UNK
     Route: 065
     Dates: start: 20101026
  6. PERCOCET [Concomitant]
     Indication: PAIN
     Dosage: UNK
     Route: 048
  7. INFLUENZA [Concomitant]
     Indication: PRODUCT USED FOR UNKNOWN INDICATION
     Dosage: UNK
     Route: 065
     Dates: start: 20080101
  8. INFLUENZA [Concomitant]
     Dosage: UNK
     Route: 065
     Dates: start: 20091001
  9. PROGRAF [Suspect]
     Dosage: 4 MG, BID
     Route: 048
     Dates: start: 20100812, end: 20110127
  10. AZITHROMYCIN [Concomitant]
     Indication: PRODUCT USED FOR UNKNOWN INDICATION
     Dosage: 250 MG, 3XWEEKLY
     Route: 048
  11. CHLOROTHIAZIDE [Concomitant]
     Indication: PRODUCT USED FOR UNKNOWN INDICATION
     Dosage: 500 MG, UID/QD
     Route: 048
  12. CELEXA [Concomitant]
     Indication: PRODUCT USED FOR UNKNOWN INDICATION
     Dosage: 10 MG, UID/QD
     Route: 048
  13. PROGRAF [Suspect]
     Indication: LUNG TRANSPLANT
     Dosage: UNK
     Route: 048
     Dates: start: 20080915
  14. PREDNISONE [Concomitant]
     Indication: PRODUCT USED FOR UNKNOWN INDICATION
     Dosage: 10 MG, UID/QD
     Route: 048
  15. DAPSONE [Concomitant]
     Indication: PRODUCT USED FOR UNKNOWN INDICATION
     Dosage: 100 MG, UID/QD
     Route: 048
  16. TRILEPTAL [Concomitant]
     Dosage: 450 MG, BID FOR 16 DAYS
     Route: 048
  17. INFLUENZA [Concomitant]
     Dosage: UNK
     Dates: start: 20101025
  18. PLAVIX [Concomitant]
     Indication: PRODUCT USED FOR UNKNOWN INDICATION
     Dosage: 75 MG, UID/QD
     Route: 048
  19. NIFEDIPINE [Concomitant]
     Indication: PRODUCT USED FOR UNKNOWN INDICATION
     Dosage: 30 MG, BID
     Route: 048
  20. ASCORBIC ACID [Concomitant]
     Indication: PRODUCT USED FOR UNKNOWN INDICATION
     Dosage: 500 MG, BID
     Route: 048
  21. COMBIVENT [Concomitant]
     Indication: PRODUCT USED FOR UNKNOWN INDICATION
     Dosage: 2 PUFFS, EVERY 6 HOURS PRN
     Route: 055
  22. OXYGEN [Concomitant]
     Indication: PRODUCT USED FOR UNKNOWN INDICATION
     Dosage: 3 L, UNKNOWN/D
     Route: 065
  23. FUROSEMIDE [Concomitant]
     Indication: PRODUCT USED FOR UNKNOWN INDICATION
     Dosage: 40 MG, UID/QD
     Route: 048
  24. CYMBALTA [Concomitant]
     Dosage: 30 MG, UID/QD, QPM
     Route: 048
  25. TRILEPTAL [Concomitant]
     Indication: PRODUCT USED FOR UNKNOWN INDICATION
     Dosage: 150 MG, BID FOR 7 DAYS
     Route: 048
  26. ASPIRIN [Concomitant]
     Indication: PRODUCT USED FOR UNKNOWN INDICATION
     Dosage: 81 MG, UID/QD
     Route: 048
  27. LOPRESSOR [Concomitant]
     Indication: HYPERTENSION
     Dosage: 100 MG, BID
     Route: 048
  28. CRESTOR [Concomitant]
     Indication: PRODUCT USED FOR UNKNOWN INDICATION
     Dosage: 40 MG, UID/QD
     Route: 048
  29. CYMBALTA [Concomitant]
     Indication: PRODUCT USED FOR UNKNOWN INDICATION
     Dosage: 60 MG, UID/QD, QAM
     Route: 048
  30. NEXIUM [Concomitant]
     Indication: PRODUCT USED FOR UNKNOWN INDICATION
     Dosage: 40 MG, BID
     Route: 048
  31. REGULAR INSULIN [Concomitant]
     Indication: PRODUCT USED FOR UNKNOWN INDICATION
     Dosage: SLIDING SCALE, 4-30 UNITS
     Route: 058
  32. NITROGLYCERIN [Concomitant]
     Indication: CHEST PAIN
     Dosage: 0.4 MG, PRN
     Route: 060
  33. CALCIUM CITRATE W/VITAMIN D NOS [Concomitant]
     Indication: PRODUCT USED FOR UNKNOWN INDICATION
     Dosage: 2 DF, BID
     Route: 048
  34. NIFEREX [Concomitant]
     Indication: PRODUCT USED FOR UNKNOWN INDICATION
     Dosage: 1 DF, BID
     Route: 048

REACTIONS (16)
  - ATRIAL FIBRILLATION [None]
  - CELLULITIS [None]
  - CYTOKINE RELEASE SYNDROME [None]
  - OBLITERATIVE BRONCHIOLITIS [None]
  - DEVICE OCCLUSION [None]
  - ENTEROVIRUS INFECTION [None]
  - RHINOVIRUS INFECTION [None]
  - OFF LABEL USE [None]
  - GRAFT DYSFUNCTION [None]
  - RENAL FAILURE ACUTE [None]
  - ACUTE MYOCARDIAL INFARCTION [None]
  - CLOSTRIDIUM DIFFICILE COLITIS [None]
  - LUNG TRANSPLANT REJECTION [None]
  - HYPOTENSION [None]
  - OEDEMA [None]
  - FIBULA FRACTURE [None]
